FAERS Safety Report 6434684-3 (Version None)
Quarter: 2009Q4

REPORT INFORMATION
  Report Type: 
  Country: None (occurrence: None)
  Receive Date: 20091109
  Receipt Date: 20091109
  Transmission Date: 20100525
  Serious: No
  Sender: FDA-Public Use
  Company Number: None

PATIENT
  Age: 55 Year
  Sex: Female
  Weight: 73 kg

DRUGS (4)
  1. TYLENOLPM ACETAMIN. 500MG-DIPHENHYD. 25MG [Suspect]
     Indication: NASOPHARYNGITIS
     Dosage: 2 CPLETS EVERY 8 HOURS ONE WEEK BUCCAL
     Route: 002
     Dates: start: 20081218, end: 20081222
  2. TYLENOLPM ACETAMIN. 500MG-DIPHENHYD. 25MG [Suspect]
     Indication: SLEEP DISORDER THERAPY
     Dosage: 2 CPLETS EVERY 8 HOURS ONE WEEK BUCCAL
     Route: 002
     Dates: start: 20081218, end: 20081222
  3. TYLENOLPM ACETAMIN. 500MG-DIPHENHYD. 25MG [Suspect]
     Indication: NASOPHARYNGITIS
     Dosage: 2 CPLETS EVERY 8 HOURS ONE WEEK BUCCAL
     Route: 002
     Dates: start: 20091025, end: 20091027
  4. TYLENOLPM ACETAMIN. 500MG-DIPHENHYD. 25MG [Suspect]
     Indication: SLEEP DISORDER THERAPY
     Dosage: 2 CPLETS EVERY 8 HOURS ONE WEEK BUCCAL
     Route: 002
     Dates: start: 20091025, end: 20091027

REACTIONS (2)
  - FAMILY STRESS [None]
  - PANIC ATTACK [None]
